FAERS Safety Report 5024430-2 (Version None)
Quarter: 2006Q2

REPORT INFORMATION
  Report Type: 
  Country: None (occurrence: None)
  Receive Date: 20060607
  Receipt Date: 20060519
  Transmission Date: 20061013
  Serious: Yes (Hospitalization)
  Sender: FDA-Public Use
  Company Number: 225556

PATIENT
  Age: 64 Year
  Sex: Male

DRUGS (3)
  1. AVASTIN [Suspect]
     Indication: COLORECTAL CANCER
     Dosage: 562.5 MG, INTRAVENOUS
     Route: 042
     Dates: start: 20060328
  2. CAPECITABINE (CAPECITABINE) [Suspect]
     Indication: COLORECTAL CANCER METASTATIC
     Dosage: 2000 MG/M2, QD, ORAL
     Route: 048
     Dates: start: 20060328
  3. IRINOTECAN HCL [Suspect]
     Indication: COLORECTAL CANCER METASTATIC
     Dosage: 370 MG, INTRAVENOUS
     Route: 042
     Dates: start: 20060328

REACTIONS (1)
  - APLASIA [None]
